FAERS Safety Report 4745089-5 (Version None)
Quarter: 2005Q3

REPORT INFORMATION
  Report Type: 
  Country: None (occurrence: None)
  Receive Date: 20050815
  Receipt Date: 20050712
  Transmission Date: 20060218
  Serious: Yes (Life-Threatening)
  Sender: FDA-Public Use
  Company Number: JP-ROCHE-410714

PATIENT
  Age: 18 Year
  Sex: Female

DRUGS (3)
  1. ROCEPHIN [Suspect]
     Indication: INFECTION
     Route: 042
     Dates: start: 20050707, end: 20050707
  2. SULPYRINE [Concomitant]
     Route: 041
  3. SOLDEM [Concomitant]
     Dosage: REPORTED AS SOLDEM 3.
     Route: 041

REACTIONS (6)
  - ABNORMAL FAECES [None]
  - ACIDOSIS [None]
  - HEPATIC FUNCTION ABNORMAL [None]
  - RENAL IMPAIRMENT [None]
  - SHOCK [None]
  - VOMITING [None]
